FAERS Safety Report 13865843 (Version 1)
Quarter: 2017Q3

REPORT INFORMATION
  Report Type: Spontaneous
  Country: US (occurrence: US)
  Receive Date: 20170814
  Receipt Date: 20170814
  Transmission Date: 20171127
  Serious: No
  Sender: FDA-Public Use
  Company Number: US-ROCHE-674019

PATIENT
  Sex: Female

DRUGS (1)
  1. TAMIFLU [Suspect]
     Active Substance: OSELTAMIVIR PHOSPHATE
     Indication: H1N1 INFLUENZA
     Route: 048
     Dates: start: 20091207, end: 20091209

REACTIONS (3)
  - Rash generalised [Unknown]
  - Cough [Unknown]
  - Mouth swelling [Unknown]

NARRATIVE: CASE EVENT DATE: 20091209
